FAERS Safety Report 6067802-X (Version None)
Quarter: 2009Q1

REPORT INFORMATION
  Report Type: 
  Country: None (occurrence: None)
  Receive Date: 20090203
  Receipt Date: 20090122
  Transmission Date: 20090719
  Serious: Yes (Other)
  Sender: FDA-Public Use
  Company Number: 230884K09USA

PATIENT
  Age: 56 Year
  Sex: Male

DRUGS (5)
  1. REBIF [Suspect]
     Indication: MULTIPLE SCLEROSIS
     Dosage: 44 MCG, 3 IN 1 WEEKS, SUBCUTANEOUS
     Route: 058
     Dates: start: 20060515, end: 20081116
  2. CARVEDILOL [Concomitant]
  3. PRAVASTATIN [Concomitant]
  4. HYDROCHLOROTHIAZIDE [Concomitant]
  5. CITALOPRAM (CITLOPRAM /00582601/) [Concomitant]

REACTIONS (5)
  - ADRENAL NEOPLASM [None]
  - FULL BLOOD COUNT DECREASED [None]
  - LUNG NEOPLASM [None]
  - NEOPLASM PROSTATE [None]
  - SPINAL OSTEOARTHRITIS [None]
